FAERS Safety Report 12960388 (Version 1)
Quarter: 2016Q4

REPORT INFORMATION
  Report Type: Spontaneous
  Country: US (occurrence: US)
  Receive Date: 20161121
  Receipt Date: 20161121
  Transmission Date: 20170207
  Serious: Yes (Hospitalization)
  Sender: FDA-Public Use
  Company Number: US-SA-2016SA209344

PATIENT
  Age: 4 Year
  Sex: Male

DRUGS (1)
  1. LUMIZYME [Suspect]
     Active Substance: ALGLUCOSIDASE ALFA
     Indication: GLYCOGEN STORAGE DISEASE TYPE II
     Route: 042

REACTIONS (4)
  - Device related infection [Not Recovered/Not Resolved]
  - Abasia [Recovering/Resolving]
  - Pyrexia [Not Recovered/Not Resolved]
  - Muscle tone disorder [Recovering/Resolving]

NARRATIVE: CASE EVENT DATE: 2016
